FAERS Safety Report 8410828-9 (Version None)
Quarter: 2012Q2

REPORT INFORMATION
  Report Type: 
  Country: None (occurrence: None)
  Receive Date: 20120529
  Receipt Date: 20060309
  Transmission Date: 20120825
  Serious: Yes (Hospitalization)
  Sender: FDA-Public Use
  Company Number: 15691-USA-06-0765

PATIENT
  Age: 80 Year
  Sex: Female

DRUGS (11)
  1. PAXIL [Concomitant]
  2. ASPIRIN [Concomitant]
  3. AMIODARONE HCL [Concomitant]
  4. HYDRALAZINE HCL [Concomitant]
  5. TOLVAPTAN (TOLVAPTAN(V4.1)) 30MG [Suspect]
     Indication: CARDIAC FAILURE CONGESTIVE
     Dosage: 30MG, QD, ORAL
     Route: 048
     Dates: start: 20051019
  6. COUMADIN [Concomitant]
  7. SPIRONOLACTONE [Concomitant]
  8. IRON (IRON) [Concomitant]
  9. PRAZOCOR (PRAZOSIN HYDROCHLORIDE) [Concomitant]
  10. NEXIUM [Concomitant]
  11. CENTRUM (VITAMINS NOS, MINERALS NOS) [Concomitant]

REACTIONS (10)
  - CARDIAC FAILURE CONGESTIVE [None]
  - PLEURAL EFFUSION [None]
  - ESCHERICHIA URINARY TRACT INFECTION [None]
  - HYPERKALAEMIA [None]
  - CONDITION AGGRAVATED [None]
  - BLOOD CHLORIDE DECREASED [None]
  - CHOLELITHIASIS [None]
  - BLOOD SODIUM DECREASED [None]
  - RENAL FAILURE ACUTE [None]
  - ATELECTASIS [None]
